FAERS Safety Report 10151374 (Version 1)
Quarter: 2014Q2

REPORT INFORMATION
  Report Type: Spontaneous
  Country: US (occurrence: US)
  Receive Date: 20140502
  Receipt Date: 20140502
  Transmission Date: 20141212
  Serious: No
  Sender: FDA-Public Use
  Company Number: US-ASTRAZENECA-2013SE63212

PATIENT
  Sex: 0

DRUGS (4)
  1. PRILOSEC OTC [Suspect]
     Indication: COUGH
     Route: 048
  2. PRILOSEC OTC [Suspect]
     Indication: INCREASED UPPER AIRWAY SECRETION
     Route: 048
  3. PRILOSEC OTC [Suspect]
     Indication: COUGH
     Route: 048
  4. PRILOSEC OTC [Suspect]
     Indication: INCREASED UPPER AIRWAY SECRETION
     Route: 048

REACTIONS (5)
  - Pharyngeal oedema [Unknown]
  - Dysphagia [Unknown]
  - Odynophagia [Unknown]
  - Cough [Unknown]
  - Productive cough [Unknown]
